FAERS Safety Report 8971277 (Version 1)
Quarter: 2012Q4

REPORT INFORMATION
  Report Type: 
  Country: FR (occurrence: FR)
  Receive Date: 20121218
  Receipt Date: 20121218
  Transmission Date: 20130627
  Serious: Yes (Other)
  Sender: FDA-Public Use
  Company Number: FR-009507513-1102FRA00039

PATIENT

DRUGS (7)
  1. JANUMET [Suspect]
     Indication: TYPE 2 DIABETES MELLITUS
     Dosage: 1000 mg-50
     Route: 048
     Dates: start: 200909, end: 20110112
  2. APROVEL [Suspect]
     Indication: HYPERTENSION
     Dosage: 75 mg, qd
     Route: 048
     Dates: start: 20101223, end: 20110112
  3. DIAMICRON [Concomitant]
     Indication: TYPE 2 DIABETES MELLITUS
     Route: 048
     Dates: start: 20100213
  4. VASTEN [Concomitant]
     Indication: DYSLIPIDAEMIA
     Dosage: 40 mg, qd
     Route: 048
  5. LYSANXIA [Concomitant]
     Route: 048
  6. GLUCOR [Concomitant]
     Indication: TYPE 2 DIABETES MELLITUS
     Dosage: UNK UNK, PRN
     Route: 048
  7. NOVO-NORM [Concomitant]
     Indication: TYPE 2 DIABETES MELLITUS
     Route: 048
     Dates: start: 200909, end: 20100213

REACTIONS (5)
  - Alanine aminotransferase increased [Recovered/Resolved]
  - Aspartate aminotransferase increased [Recovered/Resolved]
  - Lipase increased [Unknown]
  - Pyrexia [Recovered/Resolved]
  - Gamma-glutamyltransferase increased [Unknown]
